FAERS Safety Report 18073484 (Version 1)
Quarter: 2020Q3

REPORT INFORMATION
  Report Type: Spontaneous
  Country: US (occurrence: US)
  Receive Date: 20200727
  Receipt Date: 20200727
  Transmission Date: 20201103
  Serious: No
  Sender: FDA-Public Use
  Company Number: US-INCYTE CORPORATION-2020IN006494

PATIENT

DRUGS (2)
  1. DEXAMETHASONE. [Suspect]
     Active Substance: DEXAMETHASONE
     Indication: VITILIGO
     Dosage: 4 MILLIGRAM SATURDAY/SUNDAY
     Route: 048
  2. JAKAFI [Suspect]
     Active Substance: RUXOLITINIB
     Indication: VITILIGO
     Dosage: 1.5 PERCENT, BID
     Route: 061

REACTIONS (3)
  - Mood swings [Unknown]
  - Myalgia [Recovered/Resolved]
  - Insomnia [Unknown]
